FAERS Safety Report 13548095 (Version 1)
Quarter: 2017Q2

REPORT INFORMATION
  Report Type: Spontaneous
  Country: GR (occurrence: GR)
  Receive Date: 20170516
  Receipt Date: 20170516
  Transmission Date: 20170830
  Serious: Yes (Death, Other)
  Sender: FDA-Public Use
  Company Number: GR-ROCHE-1931702

PATIENT

DRUGS (1)
  1. ESBRIET [Suspect]
     Active Substance: PIRFENIDONE
     Indication: IDIOPATHIC PULMONARY FIBROSIS
     Route: 065

REACTIONS (8)
  - Gastrointestinal disorder [Unknown]
  - Photosensitivity reaction [Unknown]
  - Rash [Unknown]
  - Oedema peripheral [Unknown]
  - Anal fistula [Unknown]
  - Nausea [Unknown]
  - Death [Fatal]
  - Hepatotoxicity [Unknown]
